FAERS Safety Report 16358521 (Version 1)
Quarter: 2019Q2

REPORT INFORMATION
  Report Type: Spontaneous
  Country: US (occurrence: US)
  Receive Date: 20190527
  Receipt Date: 20190527
  Transmission Date: 20190711
  Serious: Yes (Hospitalization)
  Sender: FDA-Public Use
  Company Number: US-TEVA-2019-US-1056165

PATIENT
  Age: 78 Year
  Sex: Female

DRUGS (6)
  1. FOSAMAX [Suspect]
     Active Substance: ALENDRONATE SODIUM
     Dosage: SECOND DOSE
     Route: 048
     Dates: start: 2007
  2. RISEDRONIC SODIUM [Suspect]
     Active Substance: RISEDRONATE SODIUM
     Dosage: SECOND DOSE
     Route: 048
     Dates: start: 2006, end: 200805
  3. FOSAMAX [Suspect]
     Active Substance: ALENDRONATE SODIUM
     Dosage: THIRD DOSE
     Route: 048
     Dates: start: 200705
  4. RISEDRONIC SODIUM [Suspect]
     Active Substance: RISEDRONATE SODIUM
     Indication: OSTEOPOROSIS
     Dosage: FIRST DOSE
     Route: 048
     Dates: start: 2006, end: 2008
  5. FOSAMAX [Suspect]
     Active Substance: ALENDRONATE SODIUM
     Indication: OSTEOPOROSIS
     Dosage: FIRST DOSE
     Route: 048
     Dates: start: 2001
  6. BONIVA [Suspect]
     Active Substance: IBANDRONATE SODIUM
     Indication: OSTEOPOROSIS
     Dosage: 150 MILLICURIES DAILY;
     Route: 048
     Dates: start: 2005, end: 2006

REACTIONS (4)
  - Anxiety [Unknown]
  - Emotional distress [Unknown]
  - Low turnover osteopathy [Unknown]
  - Femur fracture [Unknown]

NARRATIVE: CASE EVENT DATE: 20120327
